FAERS Safety Report 7907754-8 (Version None)
Quarter: 2011Q4

REPORT INFORMATION
  Report Type: 
  Country: None (occurrence: None)
  Receive Date: 20111110
  Receipt Date: 20111101
  Transmission Date: 20120403
  Serious: Yes (Hospitalization)
  Sender: FDA-Public Use
  Company Number: KR-ASTRAZENECA-2011SE65964

PATIENT
  Age: 26385 Day
  Sex: Female

DRUGS (6)
  1. DIAMICRON MR [Concomitant]
     Route: 048
     Dates: start: 20041201
  2. COUMADIN [Concomitant]
     Indication: ATRIAL FIBRILLATION
     Route: 048
     Dates: start: 20041201
  3. RHONAL BABY [Concomitant]
     Route: 048
     Dates: start: 20041201
  4. RHINATHIOL CAP [Concomitant]
     Route: 048
     Dates: start: 20050105, end: 20050110
  5. CRESTOR [Suspect]
     Indication: HYPERCHOLESTEROLAEMIA
     Route: 048
     Dates: start: 20041201
  6. ASCOUGH [Concomitant]
     Route: 048
     Dates: start: 20050105, end: 20050110

REACTIONS (2)
  - INFLUENZA [None]
  - ECCHYMOSIS [None]
